FAERS Safety Report 15665907 (Version 1)
Quarter: 2018Q4

REPORT INFORMATION
  Report Type: Report from Study
  Country: US (occurrence: US)
  Receive Date: 20181128
  Receipt Date: 20181128
  Transmission Date: 20190205
  Serious: Yes (Other)
  Sender: FDA-Public Use
  Company Number: US-JAZZ-2018-US-017003

PATIENT
  Age: 4 Year
  Sex: Male
  Weight: 16.8 kg

DRUGS (4)
  1. CYTARABINE. [Concomitant]
     Active Substance: CYTARABINE
     Indication: ACUTE MYELOID LEUKAEMIA
     Dosage: 70 MG, SINGLE
     Route: 037
     Dates: start: 20180108, end: 20180108
  2. VORICONAZOLE. [Concomitant]
     Active Substance: VORICONAZOLE
  3. CPX-351 [Suspect]
     Active Substance: CYTARABINE\DAUNORUBICIN
     Indication: ACUTE MYELOID LEUKAEMIA
     Dosage: UNK, QOD
     Dates: start: 20180113, end: 20180117
  4. CYTARABINE. [Concomitant]
     Active Substance: CYTARABINE
     Dosage: 70 MG, SINGLE
     Route: 037
     Dates: start: 20180212, end: 20180212

REACTIONS (3)
  - Febrile neutropenia [Unknown]
  - Lung infection [Unknown]
  - Pneumatosis [Unknown]

NARRATIVE: CASE EVENT DATE: 20180118
